FAERS Safety Report 7142867-2 (Version None)
Quarter: 2010Q4

REPORT INFORMATION
  Report Type: 
  Country: None (occurrence: None)
  Receive Date: 20101207
  Receipt Date: 20101115
  Transmission Date: 20110411
  Serious: Yes (Other)
  Sender: FDA-Public Use
  Company Number: DE-AMGEN-DEUSP2010005539

PATIENT

DRUGS (1)
  1. ENBREL [Suspect]
     Indication: PRODUCT USED FOR UNKNOWN INDICATION
     Dosage: FOR YEARS 25 MG EVERY TWO WEEKS

REACTIONS (4)
  - BLEPHARITIS [None]
  - EYELID BLEEDING [None]
  - KERATITIS [None]
  - LACRIMATION INCREASED [None]
